FAERS Safety Report 7575099-4 (Version None)
Quarter: 2011Q2

REPORT INFORMATION
  Report Type: 
  Country: None (occurrence: None)
  Receive Date: 20110627
  Receipt Date: 20110623
  Transmission Date: 20111010
  Serious: Yes (Hospitalization)
  Sender: FDA-Public Use
  Company Number: FR-PFIZER INC-2011051265

PATIENT
  Age: 54 Year
  Sex: Female
  Weight: 68 kg

DRUGS (7)
  1. PRAVASTATIN SODIUM [Concomitant]
     Indication: HYPERCHOLESTEROLAEMIA
  2. LYRICA [Suspect]
     Indication: NEURALGIA
     Dosage: 75 MG, 2X/DAY
     Route: 048
     Dates: start: 20091021, end: 20100529
  3. PARACETAMOL [Concomitant]
     Indication: NEURALGIA
     Dosage: 1 G, AS NEEDED
  4. LAMALINE [Concomitant]
     Indication: NEURALGIA
  5. LYRICA [Suspect]
     Indication: EPILEPSY
  6. NEXIUM [Concomitant]
     Indication: PROPHYLAXIS
     Dosage: UNK
     Dates: start: 20080101
  7. KERLONE [Concomitant]
     Indication: HYPERTENSION
     Dosage: UNK
     Dates: start: 20000101

REACTIONS (1)
  - EPILEPSY [None]
